FAERS Safety Report 17673689 (Version 12)
Quarter: 2020Q4

REPORT INFORMATION
  Report Type: Report from Study
  Country: SA (occurrence: SA)
  Receive Date: 20200416
  Receipt Date: 20201125
  Transmission Date: 20210113
  Serious: Yes (Hospitalization)
  Sender: FDA-Public Use
  Company Number: SA-CELLTRION INC.-2020SA020488

PATIENT

DRUGS (6)
  1. REMSIMA [Suspect]
     Active Substance: INFLIXIMAB
     Dosage: 260 MG (5MG/KG)
     Route: 041
     Dates: start: 20190529
  2. HYDROCORTISONE SODIUM SUCCINATE [Concomitant]
     Active Substance: HYDROCORTISONE SODIUM SUCCINATE
     Dosage: 100 MG, STAT
     Route: 042
     Dates: start: 20191107, end: 20191107
  3. HYDROCORTISONE SODIUM SUCCINATE [Concomitant]
     Active Substance: HYDROCORTISONE SODIUM SUCCINATE
     Indication: PREMEDICATION
     Dosage: 100 MG, STAT
     Route: 042
     Dates: start: 20190710, end: 20190710
  4. HYDROCORTISONE SODIUM SUCCINATE [Concomitant]
     Active Substance: HYDROCORTISONE SODIUM SUCCINATE
     Dosage: 100 MG, STAT
     Route: 042
     Dates: start: 20200107, end: 20200107
  5. REMSIMA [Suspect]
     Active Substance: INFLIXIMAB
     Indication: CROHN^S DISEASE
     Dosage: 255 MG (5MG/KG) EVERY 0, 2. 6 WEEKS
     Route: 041
     Dates: start: 20190416, end: 20200308
  6. REMSIMA [Suspect]
     Active Substance: INFLIXIMAB
     Dosage: 255 MG
     Route: 041
     Dates: start: 20200308, end: 20200308

REACTIONS (3)
  - Off label use [Unknown]
  - Maternal exposure during pregnancy [Unknown]
  - Haemoglobin decreased [Unknown]

NARRATIVE: CASE EVENT DATE: 20200308
